FAERS Safety Report 8921048 (Version 2)
Quarter: 2012Q4

REPORT INFORMATION
  Report Type: 
  Country: ES (occurrence: ES)
  Receive Date: 20121123
  Receipt Date: 20121213
  Transmission Date: 20130627
  Serious: Yes (Hospitalization, Other)
  Sender: FDA-Public Use
  Company Number: ES-AMGEN-ESPSP2012075071

PATIENT
  Age: 52 Year
  Sex: Female
  Weight: 67 kg

DRUGS (8)
  1. ENBREL [Suspect]
     Indication: PSORIATIC ARTHROPATHY
     Dosage: 25 mg, weekly
     Route: 058
     Dates: start: 201202
  2. PLAVIX [Concomitant]
     Indication: CARDIAC DISORDER
     Dosage: 75 mg, 1x/day
     Route: 048
  3. ADIRO [Concomitant]
     Indication: CARDIAC DISORDER
     Dosage: UNK
  4. EMCONCOR COR [Concomitant]
     Indication: CARDIAC DISORDER
     Dosage: UNK
  5. METHOTREXATE [Concomitant]
     Indication: PSORIATIC ARTHROPATHY
     Dosage: UNK
  6. ACFOL [Concomitant]
     Dosage: UNK
  7. SIMVASTATIN [Concomitant]
     Indication: BLOOD CHOLESTEROL INCREASED
     Dosage: UNK
  8. OMEPRAZOLE [Concomitant]
     Indication: PROPHYLAXIS AGAINST GASTROINTESTINAL ULCER
     Dosage: UNK

REACTIONS (1)
  - Cardiac disorder [Recovered/Resolved]
